FAERS Safety Report 6726440-3 (Version None)
Quarter: 2010Q2

REPORT INFORMATION
  Report Type: 
  Country: None (occurrence: None)
  Receive Date: 20100514
  Receipt Date: 20100512
  Transmission Date: 20101027
  Serious: Yes (Hospitalization)
  Sender: FDA-Public Use
  Company Number: CA-ROXANE LABORATORIES, INC.-2010-RO-00565RO

PATIENT
  Age: 60 Year
  Sex: Male

DRUGS (2)
  1. COCAINE [Suspect]
     Indication: DRUG ABUSE
  2. LEVAMISOLE [Suspect]

REACTIONS (1)
  - FEBRILE NEUTROPENIA [None]
